FAERS Safety Report 9603798 (Version 1)
Quarter: 2013Q4

REPORT INFORMATION
  Report Type: Spontaneous
  Country: US (occurrence: US)
  Receive Date: 20131008
  Receipt Date: 20131008
  Transmission Date: 20140711
  Serious: No
  Sender: FDA-Public Use
  Company Number: US-B.I. PHARMACEUTICALS,INC./RIDGEFIELD-2013-BI-30767BP

PATIENT
  Sex: Female

DRUGS (3)
  1. SPIRIVA [Suspect]
     Indication: CHRONIC OBSTRUCTIVE PULMONARY DISEASE
     Dosage: 36 MCG
     Route: 055
     Dates: start: 2013
  2. ASPIRIN [Concomitant]
     Route: 048
  3. PROAIR [Concomitant]
     Route: 055

REACTIONS (2)
  - Deafness [Not Recovered/Not Resolved]
  - Medication error [Not Recovered/Not Resolved]
